FAERS Safety Report 7742279-4 (Version None)
Quarter: 2011Q3

REPORT INFORMATION
  Report Type: 
  Country: None (occurrence: None)
  Receive Date: 20110912
  Receipt Date: 20110831
  Transmission Date: 20111222
  Serious: Yes (Hospitalization)
  Sender: FDA-Public Use
  Company Number: US-BAYER-2011-023945

PATIENT
  Age: 51 Year
  Sex: Female
  Weight: 67.12 kg

DRUGS (8)
  1. SYNTHROID [Concomitant]
  2. CENTRUM [Concomitant]
  3. ESTRADIOL [Concomitant]
  4. HYDROCHLOROTHIAZIDE [Concomitant]
  5. YASMIN [Suspect]
     Indication: OESTROGEN REPLACEMENT THERAPY
     Dosage: UNK
     Dates: start: 20011101, end: 20030301
  6. YASMIN [Suspect]
     Dosage: UNK
     Dates: start: 20030201, end: 20030301
  7. PAXIL [Concomitant]
  8. FLUOXETINE [Concomitant]

REACTIONS (5)
  - DEEP VEIN THROMBOSIS [None]
  - MENTAL DISORDER [None]
  - INJURY [None]
  - PAIN [None]
  - POOR PERIPHERAL CIRCULATION [None]
